FAERS Safety Report 8818855 (Version 1)
Quarter: 2012Q4

REPORT INFORMATION
  Report Type: 
  Country: ZA (occurrence: ZA)
  Receive Date: 20121001
  Receipt Date: 20121001
  Transmission Date: 20130627
  Serious: Yes (Other)
  Sender: FDA-Public Use
  Company Number: ZA-NOVOPROD-360413

PATIENT
  Age: 65 Year
  Sex: Female

DRUGS (1)
  1. ACTRAPHANE 30 FLEXPEN [Suspect]
     Indication: TYPE 2 DIABETES MELLITUS
     Dosage: 66 IU, qd
     Dates: start: 200701

REACTIONS (6)
  - Accidental overdose [Recovered/Resolved]
  - Altered state of consciousness [Recovered/Resolved]
  - Diarrhoea [Recovered/Resolved]
  - Chest pain [Recovered/Resolved]
  - Tremor [Recovered/Resolved]
  - Hyperhidrosis [Recovered/Resolved]
